FAERS Safety Report 23428568 (Version 1)
Quarter: 2024Q1

REPORT INFORMATION
  Report Type: Spontaneous
  Country: FR (occurrence: FR)
  Receive Date: 20240122
  Receipt Date: 20240122
  Transmission Date: 20240409
  Serious: Yes (Other)
  Sender: FDA-Public Use
  Company Number: FR-EPICPHARMA-FR-2024EPCLIT00108

PATIENT
  Age: 2 Month
  Sex: Female

DRUGS (3)
  1. TROPICAMIDE [Suspect]
     Active Substance: TROPICAMIDE
     Indication: Retinopathy of prematurity
  2. PHENYLEPHRINE [Suspect]
     Active Substance: PHENYLEPHRINE HYDROCHLORIDE
     Indication: Retinopathy of prematurity
  3. BEVACIZUMAB [Concomitant]
     Active Substance: BEVACIZUMAB
     Route: 035

REACTIONS (2)
  - Necrotising colitis [Recovered/Resolved]
  - Product use in unapproved indication [Unknown]
